FAERS Safety Report 9620976 (Version 2)
Quarter: 2013Q4

REPORT INFORMATION
  Report Type: Report from Study
  Country: US (occurrence: US)
  Receive Date: 20131015
  Receipt Date: 20131021
  Transmission Date: 20140711
  Serious: Yes (Death, Hospitalization, Other)
  Sender: FDA-Public Use
  Company Number: PHEH2013US021229

PATIENT
  Age: 91 Year
  Sex: Female

DRUGS (22)
  1. GLEEVEC [Suspect]
     Indication: CHRONIC MYELOID LEUKAEMIA
     Dosage: 100 MG, DAILY
     Route: 048
     Dates: start: 20100617, end: 20130630
  2. GLEEVEC [Suspect]
     Dosage: 100 MG, DAILY
  3. SYSTANE [Concomitant]
     Dosage: 1 DF (1 DROP RIGHT EYE), BID
  4. CALCITRIOL [Concomitant]
     Dosage: 0.25 UG, UNK
  5. CARDIZEM [Concomitant]
     Dosage: 120 MG, DAILY
  6. FERROUS SULFATE [Concomitant]
     Dosage: 325 MG, BID
  7. IMDUR [Concomitant]
     Dosage: 60 MG, DAILY
  8. MURO 128 [Concomitant]
     Dosage: 1 DF (1 DROP LEFT EYE), BID
  9. NITROGLYCERINE [Concomitant]
     Indication: CHEST PAIN
     Dosage: 0.4 MG (EVERY 5 MIN PRN), UNK
     Route: 060
  10. NORCO [Concomitant]
     Dosage: 5/325 (ONE TO TWO Q 4 P R N), UNK
  11. PRAVACHOL [Concomitant]
     Dosage: 40 MG, EVERY NIGHT AT BEDTIME
  12. PROTONIX [Concomitant]
     Dosage: 40 MG, EVERY NIGHT AT BEDTIME
  13. REMERON [Concomitant]
     Dosage: 15 MG, EVERY NIGHT AT BEDTIME
  14. VITAMIN D [Concomitant]
     Dosage: 2000 U, DAILY
  15. DEMADEX [Concomitant]
     Dosage: 20 MG, DAILY
  16. MEGACE [Concomitant]
     Dosage: 800 MG, DAILY
  17. HALDOL [Concomitant]
     Dosage: 5 MG, BID
  18. HYOSCYAMINE [Concomitant]
     Dosage: 0.375 (SR 1 P. O.) UNK, BID
     Route: 048
  19. TYLENOL [Concomitant]
     Dosage: 650 MG, EVERY 6 HRS P.R.N.
  20. LASIX [Concomitant]
     Dosage: 40 MG, DAILY
  21. MAGNESIUM OXIDE [Concomitant]
     Dosage: 400 MG, DAILY
  22. PROCRIT//ERYTHROPOIETIN [Concomitant]
     Dosage: 6000 U, MONTHLY

REACTIONS (16)
  - Death [Fatal]
  - Renal failure acute [Unknown]
  - Mental impairment [Unknown]
  - Encephalopathy [Unknown]
  - Delirium [Unknown]
  - Supraventricular tachycardia [Recovering/Resolving]
  - Renal failure chronic [Unknown]
  - Diarrhoea [Unknown]
  - Dehydration [Unknown]
  - Hypovolaemia [Unknown]
  - Cystitis [Unknown]
  - Asthenia [Unknown]
  - Gout [Unknown]
  - Hypertension [Unknown]
  - Anaemia [Unknown]
  - Hypokalaemia [Unknown]
